FAERS Safety Report 19375054 (Version 4)
Quarter: 2021Q2

REPORT INFORMATION
  Report Type: Spontaneous
  Country: US (occurrence: US)
  Receive Date: 20210604
  Receipt Date: 20210617
  Transmission Date: 20210717
  Serious: Yes (Hospitalization, Disabling, Other)
  Sender: FDA-Public Use
  Company Number: US-GILEAD-2021-0534163

PATIENT
  Age: 33 Year
  Sex: Female

DRUGS (1)
  1. HARVONI [Suspect]
     Active Substance: LEDIPASVIR\SOFOSBUVIR
     Indication: CHRONIC HEPATITIS C
     Dosage: 1 DOSAGE FORM, QD
     Route: 048
     Dates: start: 2016, end: 201703

REACTIONS (7)
  - Coma [Recovered/Resolved with Sequelae]
  - Pulmonary embolism [Unknown]
  - Overdose [Unknown]
  - Pneumothorax [Unknown]
  - Cerebrovascular accident [Recovered/Resolved with Sequelae]
  - Brain injury [Unknown]
  - Dyspnoea [Unknown]

NARRATIVE: CASE EVENT DATE: 20160910
